FAERS Safety Report 15993704 (Version 1)
Quarter: 2019Q1

REPORT INFORMATION
  Report Type: Spontaneous
  Country: US (occurrence: US)
  Receive Date: 20190222
  Receipt Date: 20190222
  Transmission Date: 20190418
  Serious: No
  Sender: FDA-Public Use
  Company Number: US-BAXTER-2019BAX003530

PATIENT
  Sex: Female

DRUGS (4)
  1. 5% DEXTROSE INJECTION, USP [Suspect]
     Active Substance: DEXTROSE
     Indication: PRODUCT USED FOR UNKNOWN INDICATION
     Dosage: AS PART OF BANANA BAG THERAPY; TO RECEIVE EVERY OTHER DAY
     Route: 042
     Dates: start: 20190207
  2. INFUVITE ADULT [Suspect]
     Active Substance: .ALPHA.-TOCOPHEROL ACETATE\ASCORBIC ACID\BIOTIN\CHOLECALCIFEROL\CYANOCOBALAMIN\DEXPANTHENOL\FOLIC ACID\NIACINAMIDE\PHYTONADIONE\PYRIDOXINE HYDROCHLORIDE\RIBOFLAVIN 5^-PHOSPHATE SODIUM\THIAMINE HYDROCHLORIDE\VITAMIN A PALMITATE
     Indication: PRODUCT USED FOR UNKNOWN INDICATION
     Dosage: AS PART OF BANANA BAG THERAPY; TO RECEIVE EVERY OTHER DAY
     Route: 042
     Dates: start: 20190207
  3. FOLIC ACID. [Suspect]
     Active Substance: FOLIC ACID
     Indication: PRODUCT USED FOR UNKNOWN INDICATION
     Dosage: AS PART OF BANANA BAG THERAPY; TO RECEIVE EVERY OTHER DAY
     Route: 042
     Dates: start: 20190207
  4. THIAMINE. [Suspect]
     Active Substance: THIAMINE
     Indication: PRODUCT USED FOR UNKNOWN INDICATION
     Dosage: AS PART OF BANANA BAG THERAPY; TO RECEIVE EVERY OTHER DAY
     Route: 042
     Dates: start: 20190207

REACTIONS (6)
  - Abdominal pain [Recovering/Resolving]
  - Dyspnoea [Recovering/Resolving]
  - Chest pain [Recovering/Resolving]
  - Feeling abnormal [Recovering/Resolving]
  - Flushing [Recovering/Resolving]
  - Pallor [Recovering/Resolving]

NARRATIVE: CASE EVENT DATE: 20190207
